FAERS Safety Report 21615803 (Version 4)
Quarter: 2023Q1

REPORT INFORMATION
  Report Type: Report from Study
  Country: US (occurrence: US)
  Receive Date: 20221118
  Receipt Date: 20230318
  Transmission Date: 20230417
  Serious: No
  Sender: FDA-Public Use
  Company Number: US-002147023-NVSC2022US241894

PATIENT
  Sex: Male

DRUGS (1)
  1. ENTRESTO [Suspect]
     Active Substance: SACUBITRIL\VALSARTAN
     Indication: Product used for unknown indication
     Dosage: UNK
     Route: 065

REACTIONS (7)
  - Peripheral swelling [Unknown]
  - Personality change [Unknown]
  - Chest pain [Not Recovered/Not Resolved]
  - Ejection fraction abnormal [Unknown]
  - Weight increased [Unknown]
  - Glycosylated haemoglobin increased [Unknown]
  - Dizziness [Not Recovered/Not Resolved]
